FAERS Safety Report 10191237 (Version 2)
Quarter: 2014Q3

REPORT INFORMATION
  Report Type: Spontaneous
  Country: US (occurrence: US)
  Receive Date: 20140523
  Receipt Date: 20140718
  Transmission Date: 20150326
  Serious: Yes (Other)
  Sender: FDA-Public Use
  Company Number: US-PFIZER INC-2014139778

PATIENT
  Sex: Female

DRUGS (1)
  1. ANBESOL MAXIMUM STRENGTH GEL [Suspect]
     Active Substance: BENZOCAINE
     Dosage: UNK
     Route: 048

REACTIONS (4)
  - Choking [Unknown]
  - Product taste abnormal [Unknown]
  - Expired product administered [None]
  - Product odour abnormal [Unknown]
